FAERS Safety Report 6975848-X (Version None)
Quarter: 2010Q3

REPORT INFORMATION
  Report Type: 
  Country: None (occurrence: None)
  Receive Date: 20100910
  Receipt Date: 20090427
  Transmission Date: 20110219
  Serious: No
  Sender: FDA-Public Use
  Company Number: US-WYE-H08859609

PATIENT
  Sex: Female
  Weight: 73.55 kg

DRUGS (3)
  1. PRISTIQ [Suspect]
     Indication: TINNITUS
     Route: 048
     Dates: start: 20081201, end: 20090407
  2. FEXOFENADINE HCL [Concomitant]
  3. ARTHROTEC [Concomitant]

REACTIONS (6)
  - BOWEL MOVEMENT IRREGULARITY [None]
  - DECREASED APPETITE [None]
  - DRUG INEFFECTIVE FOR UNAPPROVED INDICATION [None]
  - HEADACHE [None]
  - INSOMNIA [None]
  - LIBIDO DECREASED [None]
